FAERS Safety Report 4986347-9 (Version None)
Quarter: 2006Q2

REPORT INFORMATION
  Report Type: 
  Country: None (occurrence: None)
  Receive Date: 20060428
  Receipt Date: 20060421
  Transmission Date: 20061013
  Serious: Yes (Other)
  Sender: FDA-Public Use
  Company Number: US-GLAXOSMITHKLINE-A0602820A

PATIENT
  Age: 54 Year
  Sex: Male

DRUGS (9)
  1. TRIZIVIR [Suspect]
     Indication: HIV INFECTION
     Route: 048
  2. COMBIVIR [Suspect]
     Indication: HIV INFECTION
  3. AZT [Suspect]
     Indication: HIV INFECTION
  4. 3TC [Suspect]
     Indication: HIV INFECTION
  5. ACYCLOVIR [Concomitant]
  6. ATENOLOL [Concomitant]
  7. MAXZIDE [Concomitant]
  8. PEPCID [Concomitant]
  9. LOVASTATIN [Concomitant]

REACTIONS (5)
  - ALANINE AMINOTRANSFERASE INCREASED [None]
  - LIPOHYPERTROPHY [None]
  - LOCAL SWELLING [None]
  - MUSCLE ATROPHY [None]
  - ULTRASOUND LIVER ABNORMAL [None]
